FAERS Safety Report 6077402-3 (Version None)
Quarter: 2009Q1

REPORT INFORMATION
  Report Type: 
  Country: None (occurrence: None)
  Receive Date: 20090213
  Receipt Date: 20090205
  Transmission Date: 20090719
  Serious: Yes (Other)
  Sender: FDA-Public Use
  Company Number: US-JNJFOC-20090201400

PATIENT

DRUGS (3)
  1. PREZISTA [Suspect]
     Route: 048
  2. PREZISTA [Suspect]
     Route: 048
  3. PREZISTA [Suspect]
     Indication: HIV INFECTION
     Route: 048

REACTIONS (1)
  - CONVULSION [None]
